FAERS Safety Report 9928577 (Version 1)
Quarter: 2014Q1

REPORT INFORMATION
  Report Type: Spontaneous
  Country: PE (occurrence: PE)
  Receive Date: 20140227
  Receipt Date: 20140227
  Transmission Date: 20141002
  Serious: Yes (Death, Other)
  Sender: FDA-Public Use
  Company Number: PE-PFIZER INC-2014053714

PATIENT
  Age: 81 Year
  Sex: Female

DRUGS (1)
  1. XALATAN [Suspect]
     Route: 047

REACTIONS (2)
  - Uterine cancer [Fatal]
  - Disease progression [Fatal]
